FAERS Safety Report 13795119 (Version 2)
Quarter: 2017Q3

REPORT INFORMATION
  Report Type: Spontaneous
  Country: AT (occurrence: AT)
  Receive Date: 20170726
  Receipt Date: 20170830
  Transmission Date: 20171127
  Serious: Yes (Death, Other)
  Sender: FDA-Public Use
  Company Number: PHHY2017AT107991

PATIENT
  Sex: Female

DRUGS (5)
  1. XYLOCAINE [Concomitant]
     Active Substance: LIDOCAINE HYDROCHLORIDE
     Indication: PRODUCT USED FOR UNKNOWN INDICATION
     Dosage: UNK
     Route: 065
  2. SANDOSTATIN LAR DEPOT [Suspect]
     Active Substance: OCTREOTIDE ACETATE
     Indication: NEUROENDOCRINE TUMOUR
     Dosage: 30 MG, QMO (ONCE MONTHLY)
     Route: 030
     Dates: start: 1999, end: 20170629
  3. GLANDOMED [Concomitant]
     Indication: PRODUCT USED FOR UNKNOWN INDICATION
     Dosage: UNK
     Route: 065
  4. AFINITOR [Suspect]
     Active Substance: EVEROLIMUS
     Indication: NEUROENDOCRINE TUMOUR
     Dosage: 5 MG, QD
     Route: 048
     Dates: start: 20170608, end: 20170627
  5. CORTISONE [Concomitant]
     Active Substance: CORTISONE\HYDROCORTISONE
     Indication: PRODUCT USED FOR UNKNOWN INDICATION
     Dosage: UNK
     Route: 065

REACTIONS (18)
  - Immobile [Fatal]
  - Metastases to liver [Fatal]
  - Malignant neoplasm progression [Fatal]
  - Subdiaphragmatic abscess [Unknown]
  - Osteoporosis [Unknown]
  - Ankle fracture [Unknown]
  - Campylobacter infection [Unknown]
  - Mouth ulceration [Fatal]
  - Second primary malignancy [Fatal]
  - Cachexia [Fatal]
  - Hydrocholecystis [Unknown]
  - Radius fracture [Unknown]
  - General physical health deterioration [Fatal]
  - Upper limb fracture [Unknown]
  - Ascites [Fatal]
  - Cholelithiasis [Unknown]
  - Lung neoplasm malignant [Fatal]
  - Nephrolithiasis [Unknown]

NARRATIVE: CASE EVENT DATE: 2002
